FAERS Safety Report 9705565 (Version 1)
Quarter: 2013Q4

REPORT INFORMATION
  Report Type: Spontaneous
  Country: US (occurrence: US)
  Receive Date: 20131122
  Receipt Date: 20131122
  Transmission Date: 20140711
  Serious: No
  Sender: FDA-Public Use
  Company Number: US-GILEAD-2008-0017001

PATIENT
  Age: 49 Year
  Sex: Male

DRUGS (5)
  1. LETAIRIS [Suspect]
     Indication: PULMONARY ARTERIAL HYPERTENSION
     Route: 048
     Dates: start: 20080508, end: 20080608
  2. LEXAPRO [Concomitant]
  3. WARFARIN [Concomitant]
  4. VENTAVIS [Concomitant]
  5. REVATIO [Concomitant]

REACTIONS (4)
  - Muscle spasms [Recovered/Resolved with Sequelae]
  - Dizziness [Recovered/Resolved with Sequelae]
  - Headache [Recovered/Resolved with Sequelae]
  - Oedema [Recovered/Resolved with Sequelae]
